FAERS Safety Report 7235895-X (Version None)
Quarter: 2011Q1

REPORT INFORMATION
  Report Type: 
  Country: None (occurrence: None)
  Receive Date: 20110120
  Receipt Date: 20110111
  Transmission Date: 20110831
  Serious: Yes (Hospitalization)
  Sender: FDA-Public Use
  Company Number: BR-ASTRAZENECA-2011SE02006

PATIENT
  Age: 56 Year
  Sex: Female
  Weight: 72 kg

DRUGS (3)
  1. ATENOLOL [Suspect]
     Indication: HYPERTENSION
     Route: 048
  2. ATACAND [Suspect]
     Indication: HYPERTENSION
     Route: 048
     Dates: start: 20090101, end: 20110101
  3. ENALAPRIL [Concomitant]
     Indication: HYPERTENSION
     Route: 048
     Dates: end: 20090901

REACTIONS (4)
  - BLOOD PRESSURE INCREASED [None]
  - RENAL COLIC [None]
  - DRUG INEFFECTIVE [None]
  - NEPHROLITHIASIS [None]
